FAERS Safety Report 16715358 (Version 1)
Quarter: 2019Q4

REPORT INFORMATION
  Report Type: Spontaneous
  Country: US (occurrence: US)
  Receive Date: 20190816
  Receipt Date: 20190816
  Transmission Date: 20200122
  Serious: Yes (Death)
  Sender: FDA-Public Use
  Company Number: None

PATIENT
  Age: 91 Year
  Sex: Female

DRUGS (8)
  1. POT CHLORIDE CAP 10 MEQ ER [Concomitant]
  2. CLOPIDOGREL TAB 75 MG [Concomitant]
  3. AMIODARONE TAB 200 MG [Concomitant]
  4. ESCITALOPRAM TAB 10 MG [Concomitant]
  5. ELIQUIS TAB 2.5 MG [Concomitant]
  6. FUROSEMIDE TAB 40 MG [Concomitant]
  7. LOSARTAN POT TAB 100 MG [Concomitant]
     Active Substance: LOSARTAN POTASSIUM
  8. REPATHA [Suspect]
     Active Substance: EVOLOCUMAB
     Indication: HYPERCHOLESTEROLAEMIA
     Dosage: ?          OTHER FREQUENCY:MONTHLY;?
     Route: 058
     Dates: start: 20171211

REACTIONS (1)
  - Death [None]
